FAERS Safety Report 9233198 (Version 1)
Quarter: 2013Q2

REPORT INFORMATION
  Report Type: Spontaneous
  Country: US (occurrence: None)
  Receive Date: 20130415
  Receipt Date: 20130415
  Transmission Date: 20140414
  Serious: No
  Sender: FDA-Public Use
  Company Number: None

PATIENT
  Age: 63 Year
  Sex: Male

DRUGS (5)
  1. METHOTREXATE [Suspect]
     Indication: RHEUMATOID ARTHRITIS
  2. ENBREL [Suspect]
  3. IMURAN [Suspect]
  4. ORENCIA [Suspect]
  5. REMICADE [Suspect]

REACTIONS (3)
  - Inflammation [None]
  - Drug ineffective [None]
  - Nausea [None]
